FAERS Safety Report 12285635 (Version 1)
Quarter: 2016Q2

REPORT INFORMATION
  Report Type: Spontaneous
  Country: US (occurrence: None)
  Receive Date: 20160419
  Receipt Date: 20160419
  Transmission Date: 20160815
  Serious: No
  Sender: FDA-Public Use
  Company Number: None

PATIENT
  Age: 89 Year
  Sex: Female

DRUGS (21)
  1. IMATINIB 100MG TAB NOVARTIS [Suspect]
     Active Substance: IMATINIB
     Indication: CHRONIC MYELOID LEUKAEMIA
     Route: 048
     Dates: start: 20160404
  2. JANUVIA [Concomitant]
     Active Substance: SITAGLIPTIN PHOSPHATE
  3. ISOSORB [Concomitant]
  4. TIZANIADE [Concomitant]
  5. HYDRALAZINE [Concomitant]
     Active Substance: HYDRALAZINE HYDROCHLORIDE
  6. CH MYL LEUKW W/O [Concomitant]
  7. TRAMADOL. [Concomitant]
     Active Substance: TRAMADOL
  8. COLCHICINE. [Concomitant]
     Active Substance: COLCHICINE
  9. LANTUS [Concomitant]
     Active Substance: INSULIN GLARGINE
  10. PROMETHAZINE [Concomitant]
     Active Substance: PROMETHAZINE\PROMETHAZINE HYDROCHLORIDE
  11. BENZONATATE. [Concomitant]
     Active Substance: BENZONATATE
  12. HYDROCO/PAP [Concomitant]
  13. AKKODPURINOL [Concomitant]
  14. TEKTURNA [Concomitant]
     Active Substance: ALISKIREN HEMIFUMARATE
  15. FUROSEMIDE. [Concomitant]
     Active Substance: FUROSEMIDE
  16. MEGESTROL [Concomitant]
     Active Substance: MEGESTROL
  17. GLIMEPIRIDE. [Concomitant]
     Active Substance: GLIMEPIRIDE
  18. MELOXICAM. [Concomitant]
     Active Substance: MELOXICAM
  19. ZETIA [Concomitant]
     Active Substance: EZETIMIBE
  20. POT CL MICRO [Concomitant]
  21. HYDRALAZINE [Concomitant]
     Active Substance: HYDRALAZINE HYDROCHLORIDE

REACTIONS (1)
  - Medical device site reaction [None]

NARRATIVE: CASE EVENT DATE: 2016
